FAERS Safety Report 21904957 (Version 2)
Quarter: 2023Q2

REPORT INFORMATION
  Report Type: Spontaneous
  Country: IN (occurrence: IN)
  Receive Date: 20230124
  Receipt Date: 20230403
  Transmission Date: 20230722
  Serious: Yes (Death, Other)
  Sender: FDA-Public Use
  Company Number: IN-GLENMARK PHARMACEUTICALS-2023GMK077862

PATIENT

DRUGS (2)
  1. ABIRATERONE ACETATE [Suspect]
     Active Substance: ABIRATERONE ACETATE
     Indication: Prostate cancer
     Dosage: 4 DOSAGE FORM, QD (4 TABS PER DAY)
     Route: 048
     Dates: start: 2021, end: 202211
  2. DEGARELIX [Suspect]
     Active Substance: DEGARELIX
     Indication: Prostate cancer
     Dosage: UNK, 1 VIAL IN 28 DAYS
     Route: 042
     Dates: start: 2021, end: 202211

REACTIONS (1)
  - Neoplasm malignant [Fatal]
